FAERS Safety Report 25117080 (Version 1)
Quarter: 2025Q1

REPORT INFORMATION
  Report Type: Spontaneous
  Country: FR (occurrence: FR)
  Receive Date: 20250325
  Receipt Date: 20250325
  Transmission Date: 20250409
  Serious: Yes (Other)
  Sender: BAXTER
  Company Number: None

PATIENT
  Sex: Female

DRUGS (5)
  1. CYCLOPHOSPHAMIDE [Suspect]
     Active Substance: CYCLOPHOSPHAMIDE
     Indication: Anaplastic large cell lymphoma T- and null-cell types
     Route: 064
     Dates: start: 20240423, end: 20240423
  2. DOXORUBICIN [Suspect]
     Active Substance: DOXORUBICIN
     Indication: Anaplastic large cell lymphoma T- and null-cell types
     Route: 064
     Dates: start: 20240423, end: 20240423
  3. RITUXIMAB [Suspect]
     Active Substance: RITUXIMAB
     Indication: Anaplastic large cell lymphoma T- and null-cell types
     Route: 064
     Dates: start: 20240423, end: 20240423
  4. VINCRISTINE SULFATE [Suspect]
     Active Substance: VINCRISTINE SULFATE
     Indication: Anaplastic large cell lymphoma T- and null-cell types
     Route: 064
     Dates: start: 20240423, end: 20240423
  5. PREDNISOLONE ACETATE [Suspect]
     Active Substance: PREDNISOLONE ACETATE
     Indication: Anaplastic large cell lymphoma T- and null-cell types
     Route: 064
     Dates: start: 20240423, end: 20240427

REACTIONS (2)
  - Maternal exposure during pregnancy [Recovered/Resolved]
  - B-cell aplasia [Unknown]

NARRATIVE: CASE EVENT DATE: 20240506
